FAERS Safety Report 13060654 (Version 2)
Quarter: 2017Q1

REPORT INFORMATION
  Report Type: Spontaneous
  Country: US (occurrence: US)
  Receive Date: 20161224
  Receipt Date: 20170116
  Transmission Date: 20170428
  Serious: Yes (Death, Hospitalization, Other)
  Sender: FDA-Public Use
  Company Number: US-AMGEN-USASP2016179918

PATIENT
  Age: 75 Year
  Sex: Female
  Weight: 55.33 kg

DRUGS (2)
  1. PROLIA [Suspect]
     Active Substance: DENOSUMAB
     Indication: OSTEOPOROSIS
     Dosage: UNK
     Route: 065
     Dates: start: 20160406
  2. PROLIA [Suspect]
     Active Substance: DENOSUMAB
     Indication: HYPERLIPIDAEMIA

REACTIONS (2)
  - Lung cancer metastatic [Fatal]
  - Pain [Unknown]

NARRATIVE: CASE EVENT DATE: 201610
